FAERS Safety Report 4398663-2 (Version None)
Quarter: 2004Q3

REPORT INFORMATION
  Report Type: 
  Country: None (occurrence: None)
  Receive Date: 20040712
  Receipt Date: 20040630
  Transmission Date: 20050211
  Serious: Yes (Death, Life-Threatening, Hospitalization)
  Sender: FDA-Public Use
  Company Number: RS004512-J

PATIENT
  Age: 61 Year
  Sex: Female

DRUGS (6)
  1. RABEPRAZOLE SODIUM [Suspect]
     Indication: GASTRITIS
     Dosage: 10 MG, 1 IN 1 D, ORAL; 20MG
     Route: 048
     Dates: start: 20040508, end: 20040515
  2. RABEPRAZOLE SODIUM [Suspect]
     Indication: REFLUX OESOPHAGITIS
     Dosage: 10 MG, 1 IN 1 D, ORAL; 20MG
     Route: 048
     Dates: start: 20040508, end: 20040515
  3. RABEPRAZOLE SODIUM [Suspect]
     Indication: GASTRITIS
     Dosage: 10 MG, 1 IN 1 D, ORAL; 20MG
     Route: 048
     Dates: start: 20040517
  4. RABEPRAZOLE SODIUM [Suspect]
     Indication: REFLUX OESOPHAGITIS
     Dosage: 10 MG, 1 IN 1 D, ORAL; 20MG
     Route: 048
     Dates: start: 20040517
  5. HYOSCINE HBR HYT [Concomitant]
  6. FAMOTIDINE [Concomitant]

REACTIONS (13)
  - ACUTE RESPIRATORY DISTRESS SYNDROME [None]
  - ANAEMIA [None]
  - CONDITION AGGRAVATED [None]
  - DEHYDRATION [None]
  - DEPRESSED LEVEL OF CONSCIOUSNESS [None]
  - DIABETES MELLITUS [None]
  - GASTRITIS ATROPHIC [None]
  - HEPATITIS ACUTE [None]
  - INTERSTITIAL LUNG DISEASE [None]
  - MYALGIA [None]
  - NEPHRITIS [None]
  - PNEUMONIA [None]
  - STOMACH DISCOMFORT [None]
